FAERS Safety Report 25950548 (Version 2)
Quarter: 2025Q4

REPORT INFORMATION
  Report Type: Report from Study
  Country: EU (occurrence: EU)
  Receive Date: 20251023
  Receipt Date: 20251027
  Transmission Date: 20260118
  Serious: Yes (Hospitalization)
  Sender: ABBVIE
  Company Number: EU-ABBVIE-6511843

PATIENT
  Age: 71 Year
  Sex: Female

DRUGS (2)
  1. FOSCARBIDOPA\FOSLEVODOPA [Suspect]
     Active Substance: FOSCARBIDOPA\FOSLEVODOPA
     Indication: Parkinson^s disease
     Route: 058
  2. FOSCARBIDOPA\FOSLEVODOPA [Suspect]
     Active Substance: FOSCARBIDOPA\FOSLEVODOPA
     Dosage: DOSE REDUCE
     Route: 058

REACTIONS (3)
  - Illogical thinking [Recovering/Resolving]
  - Aggression [Recovering/Resolving]
  - Persecutory delusion [Recovering/Resolving]

NARRATIVE: CASE EVENT DATE: 20251001
